FAERS Safety Report 22282064 (Version 3)
Quarter: 2023Q2

REPORT INFORMATION
  Report Type: Spontaneous
  Country: US (occurrence: US)
  Receive Date: 20230504
  Receipt Date: 20230621
  Transmission Date: 20230721
  Serious: Yes (Other)
  Sender: FDA-Public Use
  Company Number: US-BRISTOL-MYERS SQUIBB COMPANY-2023-061301

PATIENT
  Age: 83 Year
  Sex: Male

DRUGS (1)
  1. REVLIMID [Suspect]
     Active Substance: LENALIDOMIDE
     Indication: Plasma cell myeloma
     Dosage: FREQ: TAKE 1 CAPSULE (20 MG) BY MOUTH FOR 21 DAYS; TAKE 1 CAPSULE BY MOUTH DAILY FOR 21 DAYS ON AND
     Route: 048
     Dates: start: 20190213

REACTIONS (2)
  - Pain [Recovering/Resolving]
  - Muscle spasms [Not Recovered/Not Resolved]
